FAERS Safety Report 5324215-3 (Version None)
Quarter: 2007Q2

REPORT INFORMATION
  Report Type: 
  Country: None (occurrence: None)
  Receive Date: 20070507
  Receipt Date: 20070423
  Transmission Date: 20071010
  Serious: Yes (Other)
  Sender: FDA-Public Use
  Company Number: 2007AL001723

PATIENT
  Sex: Female

DRUGS (15)
  1. DIGOXIN [Suspect]
     Dosage: 62.5 MCG; QD; PO
     Route: 048
  2. AMIODARONE HCL [Concomitant]
  3. ACETYLSALICYLIC ACID SRT [Concomitant]
  4. ATORVASTATIN CALCIUM [Concomitant]
  5. CANDESARTAN [Concomitant]
  6. CYCLIZINE [Concomitant]
  7. FUROSEMIDE [Concomitant]
  8. GLYCERYL TRINITRATE [Concomitant]
  9. ISOSORBIDE MONONITRATE [Concomitant]
  10. LEVOTHYROXINE SODIUM [Concomitant]
  11. NICORANDIL [Concomitant]
  12. OMEPRAZOLE [Concomitant]
  13. TEMAZEPAM [Concomitant]
  14. MORPHINE SULFATE [Concomitant]
  15. BISOPROLOL FUMARATE [Concomitant]

REACTIONS (1)
  - DIABETIC RETINOPATHY [None]
